FAERS Safety Report 8096546-8 (Version None)
Quarter: 2012Q1

REPORT INFORMATION
  Report Type: 
  Country: None (occurrence: None)
  Receive Date: 20120129
  Receipt Date: 20111108
  Transmission Date: 20120608
  Serious: No
  Sender: FDA-Public Use
  Company Number: US-ABBOTT-11P-163-0872580-00

PATIENT
  Sex: Female
  Weight: 72.64 kg

DRUGS (8)
  1. RANITIDINE [Concomitant]
     Indication: CROHN'S DISEASE
  2. HUMIRA [Suspect]
     Dates: start: 20111108
  3. SUDAFED 12 HOUR [Concomitant]
     Indication: HYPERSENSITIVITY
  4. MERCAPTOPURINE [Concomitant]
     Indication: CROHN'S DISEASE
  5. VITAMIN B-12 [Concomitant]
     Indication: VITAMIN B12 DECREASED
  6. TRAMADOL HCL [Concomitant]
     Indication: CROHN'S DISEASE
  7. DICYCLOMINE [Concomitant]
     Indication: CROHN'S DISEASE
  8. HUMIRA [Suspect]
     Indication: CROHN'S DISEASE
     Dates: start: 20101201, end: 20111108

REACTIONS (5)
  - ABDOMINAL DISTENSION [None]
  - FAECAL INCONTINENCE [None]
  - DEFAECATION URGENCY [None]
  - RECTAL HAEMORRHAGE [None]
  - CROHN'S DISEASE [None]
